FAERS Safety Report 10222078 (Version 2)
Quarter: 2014Q2

REPORT INFORMATION
  Report Type: Report from Study
  Country: DE (occurrence: DE)
  Receive Date: 20140606
  Receipt Date: 20140606
  Transmission Date: 20141212
  Serious: Yes (Other)
  Sender: FDA-Public Use
  Company Number: DE-BIOMARINAP-DE-2013-100740

PATIENT
  Age: 12 Year
  Sex: Female

DRUGS (4)
  1. NAGLAZYME [Suspect]
     Indication: MUCOPOLYSACCHARIDOSIS VI
     Dosage: 15 MG, QW
     Route: 041
     Dates: start: 20050915, end: 20130103
  2. RANITIDIN [Concomitant]
     Indication: PREMEDICATION
     Dosage: 50 MG, UNK
     Route: 041
  3. DECORTIN [Concomitant]
     Indication: PREMEDICATION
     Dosage: 50 UNK, UNK
     Route: 041
  4. FENISTIL [Concomitant]
     Indication: PREMEDICATION
     Dosage: 2 MG, UNK
     Route: 041

REACTIONS (1)
  - Pruritus [Recovered/Resolved]
